FAERS Safety Report 23667193 (Version 1)
Quarter: 2024Q1

REPORT INFORMATION
  Report Type: Spontaneous
  Country: IT (occurrence: IT)
  Receive Date: 20240325
  Receipt Date: 20240325
  Transmission Date: 20240410
  Serious: Yes (Other)
  Sender: FDA-Public Use
  Company Number: None

PATIENT
  Age: 33 Year
  Sex: Female

DRUGS (3)
  1. OLANZAPINE [Suspect]
     Active Substance: OLANZAPINE
     Indication: Substance abuse
     Dosage: INTAKE OF 22 CAPSULES OF 5 MG EACH, 3 BLISTER PACKS
     Route: 048
     Dates: start: 20231114, end: 20231114
  2. PREGABALIN [Concomitant]
     Active Substance: PREGABALIN
     Dosage: 1 TABLET OF 25MG 8-20 HOURS?DAILY DOSE: 50 MILLIGRAM
     Route: 048
  3. PAROXETINE [Concomitant]
     Active Substance: PAROXETINE
     Dosage: 1/2 20MG TABLET?DAILY DOSE: 10 MILLIGRAM
     Route: 048

REACTIONS (2)
  - Substance abuse [Recovered/Resolved]
  - Sopor [Recovered/Resolved]

NARRATIVE: CASE EVENT DATE: 20231114
